FAERS Safety Report 22302367 (Version 1)
Quarter: 2023Q2

REPORT INFORMATION
  Report Type: Spontaneous
  Country: CN (occurrence: None)
  Receive Date: 20230510
  Receipt Date: 20230510
  Transmission Date: 20230721
  Serious: Yes (Life-Threatening, Hospitalization, Other)
  Sender: FDA-Public Use
  Company Number: CN-ROCHE-3344925

PATIENT
  Age: 39 Year
  Sex: Male
  Weight: 82 kg

DRUGS (9)
  1. MABTHERA [Suspect]
     Active Substance: RITUXIMAB
     Indication: Mantle cell lymphoma
     Route: 041
     Dates: start: 20230407, end: 20230407
  2. MABTHERA [Suspect]
     Active Substance: RITUXIMAB
     Dosage: R-DHAP
     Route: 041
     Dates: start: 202304
  3. CYTARABINE [Suspect]
     Active Substance: CYTARABINE
     Indication: Mantle cell lymphoma
     Route: 041
     Dates: start: 20230409, end: 20230409
  4. CISPLATIN [Suspect]
     Active Substance: CISPLATIN
     Indication: Mantle cell lymphoma
     Route: 041
     Dates: start: 20230408, end: 20230408
  5. PREDNISOLONE [Concomitant]
     Active Substance: PREDNISOLONE
     Indication: Mantle cell lymphoma
     Route: 041
     Dates: start: 20230407, end: 20230407
  6. CYCLOPHOSPHAMIDE [Concomitant]
     Active Substance: CYCLOPHOSPHAMIDE
     Indication: Mantle cell lymphoma
     Dosage: R-CDOP
     Dates: start: 202304
  7. VINCRISTINE [Concomitant]
     Active Substance: VINCRISTINE
     Indication: Mantle cell lymphoma
     Dosage: R-CDOP
     Dates: start: 202304
  8. DOXORUBICIN HYDROCHLORIDE [Concomitant]
     Active Substance: DOXORUBICIN HYDROCHLORIDE
     Indication: Mantle cell lymphoma
     Dosage: R-CDOP
     Dates: start: 202304
  9. DEXAMETHASONE [Concomitant]
     Active Substance: DEXAMETHASONE
     Indication: Mantle cell lymphoma
     Dosage: R-DHAP
     Dates: start: 202304

REACTIONS (6)
  - Myelosuppression [Recovering/Resolving]
  - Thrombocytopenia [Recovering/Resolving]
  - Off label use [Unknown]
  - Nausea [Unknown]
  - Vomiting [Unknown]
  - Dysphagia [Unknown]

NARRATIVE: CASE EVENT DATE: 20230410
